FAERS Safety Report 8738280 (Version 5)
Quarter: 2014Q2

REPORT INFORMATION
  Report Type: Spontaneous
  Country: US (occurrence: US)
  Receive Date: 20120823
  Receipt Date: 20140624
  Transmission Date: 20141212
  Serious: Yes (Hospitalization, Other)
  Sender: FDA-Public Use
  Company Number: US-009507513-1208USA005655

PATIENT
  Sex: Female

DRUGS (2)
  1. FOSAMAX PLUS D [Suspect]
     Dosage: 70/2800 MG, UNK
     Route: 048
     Dates: start: 20060220, end: 201002
  2. ALENDRONATE SODIUM [Suspect]
     Dosage: 70 MG, UNK
     Route: 048
     Dates: start: 20100223, end: 20110216

REACTIONS (29)
  - Femur fracture [Recovering/Resolving]
  - Intramedullary rod insertion [Unknown]
  - Femur fracture [Not Recovered/Not Resolved]
  - Intramedullary rod insertion [Unknown]
  - Basal cell carcinoma [Unknown]
  - Open reduction of fracture [Unknown]
  - Open reduction of fracture [Unknown]
  - Hypothyroidism [Unknown]
  - Inflammatory bowel disease [Unknown]
  - Diverticulum [Unknown]
  - Hypertension [Unknown]
  - Renal impairment [Unknown]
  - Fibula fracture [Unknown]
  - Ankle fracture [Unknown]
  - Foot fracture [Unknown]
  - Fracture nonunion [Unknown]
  - Foot fracture [Unknown]
  - Device failure [Unknown]
  - Fall [Unknown]
  - Joint injury [Recovering/Resolving]
  - Ecchymosis [Unknown]
  - Blood urea increased [Unknown]
  - Blood creatinine increased [Unknown]
  - Fluid retention [Unknown]
  - Neuropathy peripheral [Unknown]
  - Diabetes mellitus [Unknown]
  - Bursitis [Unknown]
  - Treatment failure [Unknown]
  - Diarrhoea [Not Recovered/Not Resolved]
